FAERS Safety Report 17278417 (Version 1)
Quarter: 2020Q1

REPORT INFORMATION
  Report Type: Spontaneous
  Country: US (occurrence: US)
  Receive Date: 20191227
  Receipt Date: 20191227
  Transmission Date: 20200409
  Serious: Yes (Other)
  Sender: FDA-Public Use
  Company Number: None

PATIENT
  Age: 64 Year
  Sex: Female

DRUGS (1)
  1. ENBREL [Suspect]
     Active Substance: ETANERCEPT
     Indication: RHEUMATOID ARTHRITIS
     Dosage: ?          OTHER DOSE:25MG/0.5ML;?
     Route: 058
     Dates: start: 20180612

REACTIONS (4)
  - Peripheral swelling [None]
  - Gait inability [None]
  - Migraine [None]
  - Condition aggravated [None]

NARRATIVE: CASE EVENT DATE: 20190804
